FAERS Safety Report 8221042-4 (Version None)
Quarter: 2012Q1

REPORT INFORMATION
  Report Type: 
  Country: None (occurrence: None)
  Receive Date: 20120320
  Receipt Date: 20120308
  Transmission Date: 20120608
  Serious: Yes (Death, Other)
  Sender: FDA-Public Use
  Company Number: US-SANOFI-AVENTIS-2012SA016018

PATIENT
  Age: 42 Year
  Sex: Male

DRUGS (1)
  1. AMBIEN [Suspect]

REACTIONS (2)
  - COMPLETED SUICIDE [None]
  - SOMNAMBULISM [None]
